FAERS Safety Report 9204772 (Version 2)
Quarter: 2013Q2

REPORT INFORMATION
  Report Type: Spontaneous
  Country: NL (occurrence: NL)
  Receive Date: 20130402
  Receipt Date: 20130412
  Transmission Date: 20140414
  Serious: Yes (Life-Threatening, Hospitalization)
  Sender: FDA-Public Use
  Company Number: NL-PFIZER INC-2013103834

PATIENT
  Age: 27 Year
  Sex: Female
  Weight: 80 kg

DRUGS (1)
  1. CABERGOLINE [Suspect]
     Indication: LACTATION DISORDER
     Dosage: 0.5 MG, ONCE DAILY FOR 8 DAYS
     Dates: start: 20121105, end: 20121106

REACTIONS (1)
  - Pulmonary embolism [Recovering/Resolving]
